FAERS Safety Report 19855163 (Version 1)
Quarter: 2021Q3

REPORT INFORMATION
  Report Type: Report from Study
  Country: IT (occurrence: IT)
  Receive Date: 20210920
  Receipt Date: 20210920
  Transmission Date: 20211014
  Serious: Yes (Hospitalization, Other)
  Sender: FDA-Public Use
  Company Number: IT-B.I. PHARMACEUTICALS,INC./RIDGEFIELD-2020-12-018787

PATIENT
  Age: 66 Year
  Sex: Male
  Weight: 120 kg

DRUGS (7)
  1. AMLODIPINE [Suspect]
     Active Substance: AMLODIPINE BESYLATE
     Indication: INTENTIONAL SELF-INJURY
     Route: 048
     Dates: start: 20200101, end: 20200101
  2. ESOMEPRAZOLE SODIUM. [Suspect]
     Active Substance: ESOMEPRAZOLE SODIUM
     Indication: INTENTIONAL SELF-INJURY
     Route: 048
     Dates: start: 20200101, end: 20200101
  3. ROSUVASTATIN CALCIUM. [Suspect]
     Active Substance: ROSUVASTATIN CALCIUM
     Indication: INTENTIONAL SELF-INJURY
     Route: 048
     Dates: start: 20200101, end: 20200101
  4. FUROSEMIDE. [Suspect]
     Active Substance: FUROSEMIDE
     Indication: INTENTIONAL SELF-INJURY
     Route: 048
     Dates: start: 20200101, end: 20200101
  5. CARDIOASPIRIN [Concomitant]
     Active Substance: ASPIRIN
     Indication: PRODUCT USED FOR UNKNOWN INDICATION
  6. HUMALOG [Suspect]
     Active Substance: INSULIN LISPRO
     Indication: INTENTIONAL SELF-INJURY
     Dosage: HUMALOG 100 U/ML, SOLUTION FOR INJECTION IN VIAL
     Route: 058
     Dates: start: 20200101, end: 20200101
  7. JARDIANCE [Suspect]
     Active Substance: EMPAGLIFLOZIN
     Indication: INTENTIONAL SELF-INJURY
     Route: 048
     Dates: start: 20200101, end: 20200101

REACTIONS (2)
  - Drug abuse [Unknown]
  - Bradyphrenia [Unknown]

NARRATIVE: CASE EVENT DATE: 20200101
